FAERS Safety Report 9692645 (Version 2)
Quarter: 2013Q4

REPORT INFORMATION
  Report Type: Spontaneous
  Country: CL (occurrence: CL)
  Receive Date: 20131118
  Receipt Date: 20131224
  Transmission Date: 20140711
  Serious: Yes (Other)
  Sender: FDA-Public Use
  Company Number: PHHY2013CL130811

PATIENT
  Age: 76 Year
  Sex: Female

DRUGS (3)
  1. TAREG [Suspect]
     Indication: BLOOD PRESSURE
     Dosage: 160 MG, DAILY
     Route: 048
  2. TAMOXIFEN [Concomitant]
     Dosage: 20 MG, DAILY
     Dates: start: 201303
  3. LANZOPRAL [Concomitant]
     Indication: GASTRIC DISORDER
     Dosage: UNK UKN, UNK

REACTIONS (2)
  - Breast cancer [Recovered/Resolved]
  - Retracted nipple [Unknown]
